FAERS Safety Report 4374740-7 (Version None)
Quarter: 2004Q2

REPORT INFORMATION
  Report Type: 
  Country: None (occurrence: None)
  Receive Date: 20040602
  Receipt Date: 20040423
  Transmission Date: 20050107
  Serious: Yes (Other)
  Sender: FDA-Public Use
  Company Number: 200417713BWH

PATIENT
  Age: 26 Year
  Sex: Male
  Weight: 63.5036 kg

DRUGS (1)
  1. LEVITRA [Suspect]
     Dosage: ONCE, ORAL
     Route: 048
     Dates: start: 20040423

REACTIONS (2)
  - EJACULATION FAILURE [None]
  - ERECTION INCREASED [None]
